FAERS Safety Report 10340760 (Version 1)
Quarter: 2014Q3

REPORT INFORMATION
  Report Type: Spontaneous
  Country: US (occurrence: US)
  Receive Date: 20140724
  Receipt Date: 20140724
  Transmission Date: 20150326
  Serious: No
  Sender: FDA-Public Use
  Company Number: UM-ASTRAZENECA-2013SE82391

PATIENT
  Sex: Female

DRUGS (2)
  1. ANOTHER SSRI [Concomitant]
  2. SEROQUEL XR [Suspect]
     Active Substance: QUETIAPINE FUMARATE
     Indication: BIPOLAR DISORDER
     Route: 048

REACTIONS (3)
  - Intentional product misuse [Unknown]
  - Restless legs syndrome [Unknown]
  - Restlessness [Unknown]
